FAERS Safety Report 4547416-0 (Version None)
Quarter: 2005Q1

REPORT INFORMATION
  Report Type: 
  Country: None (occurrence: None)
  Receive Date: 20050107
  Receipt Date: 20041116
  Transmission Date: 20050727
  Serious: Yes (Hospitalization)
  Sender: FDA-Public Use
  Company Number: GB-BRISTOL-MYERS SQUIBB COMPANY-12767588

PATIENT
  Age: 68 Year
  Sex: Male
  Weight: 58 kg

DRUGS (3)
  1. APROVEL [Suspect]
     Dosage: ^150G^ DAILY SINCE AUG-2004, DOSE INCREASED TO 300 MG ON 29-SEP-2004.
     Route: 048
     Dates: start: 20040812, end: 20041116
  2. ASPIRIN [Concomitant]
     Route: 048
  3. CHOLESTYRAMINE [Concomitant]
     Route: 048

REACTIONS (2)
  - DELUSION [None]
  - DEPRESSION [None]
